FAERS Safety Report 12120963 (Version 1)
Quarter: 2016Q1

REPORT INFORMATION
  Report Type: Spontaneous
  Country: None (occurrence: US)
  Receive Date: 20160226
  Receipt Date: 20160226
  Transmission Date: 20160526
  Serious: No
  Sender: FDA-Public Use
  Company Number: US-ALLERGAN-1115677US

PATIENT
  Sex: Female

DRUGS (2)
  1. REFRESH OPTIVE SENSITIVE [Suspect]
     Active Substance: CARBOXYMETHYLCELLULOSE SODIUM\GLYCERIN
     Indication: MACULAR DEGENERATION
     Dosage: UNK
     Route: 047
     Dates: start: 2011
  2. REFRESH OPTIVE SENSITIVE [Suspect]
     Active Substance: CARBOXYMETHYLCELLULOSE SODIUM\GLYCERIN
     Indication: EYE HAEMORRHAGE

REACTIONS (4)
  - Eye swelling [Unknown]
  - Eye irritation [Unknown]
  - Chills [Unknown]
  - Eyelid oedema [Unknown]

NARRATIVE: CASE EVENT DATE: 2011
